FAERS Safety Report 14694552 (Version 2)
Quarter: 2018Q2

REPORT INFORMATION
  Report Type: Report from Study
  Country: US (occurrence: US)
  Receive Date: 20180329
  Receipt Date: 20180426
  Transmission Date: 20180711
  Serious: Yes (Hospitalization, Other)
  Sender: FDA-Public Use
  Company Number: US-SA-2018SA086757

PATIENT
  Age: 23 Year
  Sex: Female
  Weight: 96.6 kg

DRUGS (13)
  1. ZOLOFT [Concomitant]
     Active Substance: SERTRALINE HYDROCHLORIDE
     Route: 048
  2. SOLU-MEDROL [Concomitant]
     Active Substance: METHYLPREDNISOLONE SODIUM SUCCINATE
     Route: 065
     Dates: start: 20180323
  3. ZOCOR [Concomitant]
     Active Substance: SIMVASTATIN
     Route: 048
  4. LEMTRADA [Suspect]
     Active Substance: ALEMTUZUMAB
     Indication: MULTIPLE SCLEROSIS
     Route: 041
     Dates: start: 201508, end: 201508
  5. BUTALBITAL [Concomitant]
     Active Substance: BUTALBITAL
     Route: 048
  6. JUNEL [Concomitant]
     Active Substance: ETHINYL ESTRADIOL\NORETHINDRONE ACETATE
     Dosage: 1/20
     Route: 048
  7. ATROVENT [Concomitant]
     Active Substance: IPRATROPIUM BROMIDE
     Route: 065
  8. COPAXONE [Concomitant]
     Active Substance: GLATIRAMER ACETATE
     Route: 065
  9. LEMTRADA [Suspect]
     Active Substance: ALEMTUZUMAB
     Indication: MULTIPLE SCLEROSIS
     Route: 041
     Dates: start: 20161018, end: 20161020
  10. TOPROL XL [Concomitant]
     Active Substance: METOPROLOL SUCCINATE
     Route: 048
  11. TYSABRI [Concomitant]
     Active Substance: NATALIZUMAB
     Route: 065
  12. BUTALBITAL [Concomitant]
     Active Substance: BUTALBITAL
     Route: 065
  13. PROVIGIL [Concomitant]
     Active Substance: MODAFINIL
     Route: 048

REACTIONS (19)
  - Human papilloma virus test positive [Unknown]
  - Autoimmune thyroid disorder [Unknown]
  - Smear cervix normal [Unknown]
  - CD4 lymphocytes decreased [Unknown]
  - Protein urine present [Unknown]
  - Thyroiditis [Unknown]
  - Hypothyroidism [Unknown]
  - Arthralgia [Unknown]
  - Hyperlipidaemia [Unknown]
  - Somnolence [Unknown]
  - Urinary tract infection [Unknown]
  - Urinary sediment present [Unknown]
  - Renal impairment [Unknown]
  - Fatigue [Unknown]
  - Major depression [Unknown]
  - White blood cell count decreased [Unknown]
  - Anxiety disorder [Unknown]
  - Cervical dysplasia [Unknown]
  - Migraine [Unknown]

NARRATIVE: CASE EVENT DATE: 20170502
